FAERS Safety Report 18919147 (Version 1)
Quarter: 2021Q1

REPORT INFORMATION
  Report Type: Spontaneous
  Country: US (occurrence: US)
  Receive Date: 20210220
  Receipt Date: 20210220
  Transmission Date: 20210420
  Serious: No
  Sender: FDA-Public Use
  Company Number: US-JNJFOC-20210213204

PATIENT
  Age: 54 Year
  Sex: Female
  Weight: 75.36 kg

DRUGS (1)
  1. WOMENS ROGAINE UNSCENTED [Suspect]
     Active Substance: MINOXIDIL
     Indication: ALOPECIA
     Dosage: HALF CAPFUL?LAST USE DATE: NOV/2020
     Route: 061
     Dates: start: 2020

REACTIONS (1)
  - Trichorrhexis [Recovered/Resolved]

NARRATIVE: CASE EVENT DATE: 2020
